FAERS Safety Report 5937816-6 (Version None)
Quarter: 2008Q4

REPORT INFORMATION
  Report Type: 
  Country: None (occurrence: None)
  Receive Date: 20081031
  Receipt Date: 20081020
  Transmission Date: 20090506
  Serious: Yes (Hospitalization)
  Sender: FDA-Public Use
  Company Number: IE-ROCHE-593101

PATIENT
  Sex: Female

DRUGS (5)
  1. ROACCUTANE [Suspect]
     Indication: NEUROBLASTOMA
     Dosage: EACH CYCLE IS 14 DAYS FOLLOWED BY 14 DAY BREAK.
     Route: 048
     Dates: start: 20080813, end: 20080827
  2. ROACCUTANE [Suspect]
     Route: 048
     Dates: start: 20080909
  3. ROACCUTANE [Suspect]
     Route: 048
     Dates: start: 20081008
  4. FLUCONAZOLE [Concomitant]
     Indication: PROPHYLAXIS
     Dosage: DRUG NAME REPORTED AS FLUCLONAZOLE.
     Route: 048
     Dates: start: 20080501, end: 20081015
  5. SEPTRIN [Concomitant]
     Indication: PROPHYLAXIS
     Dosage: FREQUENCY REPORTED AS MON, WED, FRI.
     Route: 048
     Dates: start: 20080501

REACTIONS (8)
  - ANAL FISSURE [None]
  - BLOOD MAGNESIUM DECREASED [None]
  - BLOOD PARATHYROID HORMONE DECREASED [None]
  - BLOOD TRIGLYCERIDES INCREASED [None]
  - HAEMOGLOBIN DECREASED [None]
  - HYPERCALCAEMIA [None]
  - RECTAL HAEMORRHAGE [None]
  - VITAMIN D DEFICIENCY [None]
